FAERS Safety Report 9705191 (Version 3)
Quarter: 2013Q4

REPORT INFORMATION
  Report Type: Report from Study
  Country: DE (occurrence: DE)
  Receive Date: 20131122
  Receipt Date: 20131230
  Transmission Date: 20140711
  Serious: Yes (Hospitalization)
  Sender: FDA-Public Use
  Company Number: DE-ABBVIE-13P-062-1168975-00

PATIENT
  Age: 71 Year
  Sex: Male
  Weight: 85 kg

DRUGS (15)
  1. HUMIRA [Suspect]
     Indication: RHEUMATOID ARTHRITIS
     Route: 058
     Dates: start: 20120903, end: 20130102
  2. HUMIRA [Suspect]
     Route: 058
     Dates: start: 20130213, end: 20130918
  3. PREDNISOLONE [Concomitant]
     Indication: RHEUMATOID ARTHRITIS
     Dates: start: 20120620
  4. ACTRAPHANE [Concomitant]
     Indication: DIABETES MELLITUS
     Dates: start: 2002
  5. RAMIPRIL [Concomitant]
     Indication: HYPERTENSION
     Dates: start: 2002
  6. TAMSULOISIN [Concomitant]
     Indication: BENIGN PROSTATIC HYPERPLASIA
     Dates: start: 2000
  7. TORSEMIDE [Concomitant]
     Indication: RENAL FAILURE
     Dates: start: 2002
  8. BISOPROLOL [Concomitant]
     Indication: HYPERTENSION
     Dates: start: 2002
  9. ALLOPURINOL [Concomitant]
     Indication: RENAL FAILURE
     Dates: start: 2002
  10. MARCUMAR [Concomitant]
     Indication: PROPHYLAXIS
     Dates: start: 1994
  11. METHOTREXAT [Concomitant]
     Indication: RHEUMATOID ARTHRITIS
     Dates: start: 201209
  12. CELEBREX [Concomitant]
     Indication: RHEUMATOID ARTHRITIS
     Dates: start: 2012
  13. FOLIC ACID [Concomitant]
     Indication: RHEUMATOID ARTHRITIS
     Dates: start: 2012
  14. TRIAMCINOLONE HEXACETONIDE [Concomitant]
     Indication: RHEUMATOID ARTHRITIS
     Route: 050
     Dates: start: 20131004, end: 20131004
  15. TRIAMCINOLONE HEXACETONIDE [Concomitant]
     Indication: RHEUMATOID ARTHRITIS
     Route: 050
     Dates: start: 20131006, end: 20131006

REACTIONS (1)
  - Osteoarthritis [Recovered/Resolved]
